FAERS Safety Report 9019466 (Version 2)
Quarter: 2013Q2

REPORT INFORMATION
  Report Type: Spontaneous
  Country: IT (occurrence: IT)
  Receive Date: 20130118
  Receipt Date: 20130415
  Transmission Date: 20140414
  Serious: Yes (Other)
  Sender: FDA-Public Use
  Company Number: IT-PFIZER INC-2013021280

PATIENT
  Age: 74 Year
  Sex: Male

DRUGS (2)
  1. ZITROMAX [Suspect]
     Indication: OROPHARYNGEAL PAIN
     Dosage: 500 MG, SINGLE
     Route: 048
     Dates: start: 20121109, end: 20121109
  2. ZYLORIC [Concomitant]
     Dosage: UNK
     Route: 065

REACTIONS (2)
  - Dysentery [Recovered/Resolved]
  - Cystitis [Recovered/Resolved]
